FAERS Safety Report 6698527-5 (Version None)
Quarter: 2010Q2

REPORT INFORMATION
  Report Type: 
  Country: None (occurrence: None)
  Receive Date: 20100426
  Receipt Date: 20100426
  Transmission Date: 20101027
  Serious: Yes (Death)
  Sender: FDA-Public Use
  Company Number: None

PATIENT
  Sex: Male
  Weight: 87.0906 kg

DRUGS (7)
  1. NIASPAN [Suspect]
     Indication: BLOOD CHOLESTEROL
     Dosage: 1500 MG AT NIGHT PO
     Route: 048
     Dates: start: 20080709, end: 20091122
  2. EZETIMIBE [Suspect]
     Dosage: 10 MG EVERY DAY PO
     Route: 048
     Dates: start: 20080709, end: 20091122
  3. ASPIRIN [Concomitant]
  4. LISINOPRIL [Concomitant]
  5. XALATAN [Concomitant]
  6. VYTARIN [Concomitant]
  7. VIAGRA [Concomitant]

REACTIONS (1)
  - METASTASIS [None]
